FAERS Safety Report 21941797 (Version 1)
Quarter: 2023Q1

REPORT INFORMATION
  Report Type: Spontaneous
  Country: US (occurrence: US)
  Receive Date: 20230202
  Receipt Date: 20230202
  Transmission Date: 20230417
  Serious: No
  Sender: FDA-Public Use
  Company Number: US-Rhythm Pharmaceuticals, Inc.-2022RHM000124

PATIENT
  Age: 21 Year
  Sex: Female

DRUGS (1)
  1. IMCIVREE [Suspect]
     Active Substance: SETMELANOTIDE
     Indication: Laurence-Moon-Bardet-Biedl syndrome
     Dosage: 3MG (0.3 ML)
     Route: 065

REACTIONS (1)
  - Hyperphagia [Unknown]
